FAERS Safety Report 9492393 (Version 2)
Quarter: 2013Q3

REPORT INFORMATION
  Report Type: Spontaneous
  Country: US (occurrence: US)
  Receive Date: 20130830
  Receipt Date: 20130913
  Transmission Date: 20140515
  Serious: Yes (Hospitalization)
  Sender: FDA-Public Use
  Company Number: US-TARO-2013P1018770

PATIENT
  Age: 58 Year
  Sex: Male
  Weight: 93.99 kg

DRUGS (12)
  1. WARFARIN SODIUM TABLETS USP 5MG [Suspect]
     Dates: start: 2003
  2. WARFARIN SODIUM TABLETS USP 5MG [Suspect]
     Dates: start: 2007
  3. WARFARIN SODIUM TABLETS USP 5MG [Suspect]
     Route: 048
     Dates: start: 2007
  4. WARFARIN SODIUM TABLETS USP 5MG [Suspect]
     Route: 048
     Dates: start: 201004
  5. WARFARIN SODIUM TABLETS USP 5MG [Suspect]
     Route: 048
     Dates: start: 201307
  6. RAMIPRIL [Concomitant]
     Route: 048
     Dates: start: 2007
  7. COREG (CARVEDILOL) [Concomitant]
     Route: 048
     Dates: start: 2007
  8. ZOCOR (SIMVASTATIN) [Concomitant]
     Route: 048
     Dates: start: 2007
  9. PLAVIX (CLOPIDOGREL) [Concomitant]
     Route: 048
     Dates: start: 2007
  10. PAXIL (PAROXETINE) [Concomitant]
     Route: 048
  11. WARFARIN SODIUM TABLETS USP 10MG [Suspect]
     Route: 048
  12. WARFARIN SODIUM TABLETS USP 10MG [Suspect]
     Route: 048

REACTIONS (26)
  - International normalised ratio increased [Recovering/Resolving]
  - Dizziness [Unknown]
  - Gait disturbance [Unknown]
  - Haemorrhage [Recovered/Resolved]
  - Stent placement [Recovered/Resolved]
  - Product quality issue [Unknown]
  - Coagulopathy [Unknown]
  - Haematoma [Unknown]
  - Arterial stenosis [Unknown]
  - Swelling [Unknown]
  - Cough [Unknown]
  - Pain [Unknown]
  - Dyspnoea [Unknown]
  - Nausea [Unknown]
  - Dysuria [Unknown]
  - Chromaturia [Unknown]
  - Carotid bruit [Unknown]
  - Chronic obstructive pulmonary disease [Unknown]
  - Anaemia [Unknown]
  - Leukocytosis [Unknown]
  - Tobacco poisoning [Unknown]
  - Arteriosclerosis [Unknown]
  - Blood glucose increased [Unknown]
  - Chest pain [Unknown]
  - Ejection fraction decreased [Unknown]
  - Headache [Unknown]
